FAERS Safety Report 6636372-7 (Version None)
Quarter: 2010Q1

REPORT INFORMATION
  Report Type: 
  Country: None (occurrence: None)
  Receive Date: 20100316
  Receipt Date: 20100308
  Transmission Date: 20100710
  Serious: Yes (Hospitalization)
  Sender: FDA-Public Use
  Company Number: FR-WYE-H14083010

PATIENT
  Age: 91 Year
  Sex: Female

DRUGS (4)
  1. CORDARONE [Suspect]
     Indication: ATRIAL TACHYCARDIA
     Route: 048
     Dates: start: 20091022, end: 20091206
  2. ALLOPURINOL [Suspect]
     Route: 048
     Dates: start: 20091013, end: 20091124
  3. CARDENSIEL [Suspect]
     Indication: ARRHYTHMIA
     Route: 048
     Dates: start: 20091022, end: 20091206
  4. CARDENSIEL [Suspect]
     Indication: ATRIAL TACHYCARDIA

REACTIONS (1)
  - DRUG RASH WITH EOSINOPHILIA AND SYSTEMIC SYMPTOMS [None]
